FAERS Safety Report 6576750-8 (Version None)
Quarter: 2010Q1

REPORT INFORMATION
  Report Type: 
  Country: None (occurrence: None)
  Receive Date: 20100210
  Receipt Date: 20100127
  Transmission Date: 20100710
  Serious: Yes (Hospitalization, Other)
  Sender: FDA-Public Use
  Company Number: US-ELI_LILLY_AND_COMPANY-US201002000597

PATIENT
  Age: 60 Year
  Sex: Male

DRUGS (8)
  1. EFFIENT [Suspect]
     Indication: PERCUTANEOUS CORONARY INTERVENTION
     Dosage: 10 MG, UNK
     Dates: start: 20100101, end: 20100101
  2. ANALGESICS [Concomitant]
  3. ASPIRIN [Concomitant]
  4. KLONOPIN [Concomitant]
  5. LORAZEPAM [Concomitant]
  6. VYTORIN [Concomitant]
  7. PLAVIX [Concomitant]
     Dates: end: 20100101
  8. PLAVIX [Concomitant]
     Dosage: UNK, DAILY (1/D)
     Dates: start: 20100101

REACTIONS (9)
  - CHEST PAIN [None]
  - DRUG DISPENSING ERROR [None]
  - EYE IRRITATION [None]
  - LACRIMATION INCREASED [None]
  - LIP SWELLING [None]
  - ORAL DISORDER [None]
  - PHARYNGEAL OEDEMA [None]
  - PLATELET COUNT ABNORMAL [None]
  - SWOLLEN TONGUE [None]
